FAERS Safety Report 25858970 (Version 1)
Quarter: 2025Q3

REPORT INFORMATION
  Report Type: Spontaneous
  Country: CH (occurrence: CH)
  Receive Date: 20250929
  Receipt Date: 20250929
  Transmission Date: 20251020
  Serious: Yes (Death, Other)
  Sender: EMD SERONO INC
  Company Number: CH-Merck Healthcare KGaA-2025048024

PATIENT
  Age: 59 Year
  Sex: Female

DRUGS (2)
  1. MAVENCLAD [Suspect]
     Active Substance: CLADRIBINE
     Indication: Multiple sclerosis
  2. MAVENCLAD [Suspect]
     Active Substance: CLADRIBINE

REACTIONS (3)
  - Cerebral haemorrhage [Fatal]
  - Hypertensive crisis [Unknown]
  - Stress [Unknown]

NARRATIVE: CASE EVENT DATE: 20250907
